FAERS Safety Report 11023268 (Version 3)
Quarter: 2015Q2

REPORT INFORMATION
  Report Type: Spontaneous
  Country: US (occurrence: US)
  Receive Date: 20150413
  Receipt Date: 20150618
  Transmission Date: 20150821
  Serious: Yes (Other)
  Sender: FDA-Public Use
  Company Number: US-ELI_LILLY_AND_COMPANY-US201504001108

PATIENT
  Age: 62 Year
  Sex: Male

DRUGS (4)
  1. LEXAPRO [Concomitant]
     Active Substance: ESCITALOPRAM OXALATE
     Indication: DEPRESSION
     Dosage: 5 MG, UNKNOWN
     Route: 065
  2. TRULICITY [Suspect]
     Active Substance: DULAGLUTIDE
     Indication: OFF LABEL USE
     Dosage: 0.75 MG, SINGLE
     Route: 058
     Dates: start: 20150210, end: 20150213
  3. FLOMAX [Concomitant]
     Active Substance: TAMSULOSIN HYDROCHLORIDE
     Indication: PRODUCT USED FOR UNKNOWN INDICATION
     Dosage: 0.4 MG, UNKNOWN
     Route: 065
  4. XARELTO [Suspect]
     Active Substance: RIVAROXABAN
     Indication: ATRIAL FIBRILLATION
     Dosage: 10 MG, UNKNOWN
     Route: 065

REACTIONS (4)
  - Vitreous floaters [Unknown]
  - Vitreous haemorrhage [Recovered/Resolved with Sequelae]
  - Off label use [Recovered/Resolved]
  - Retinal tear [Recovered/Resolved with Sequelae]

NARRATIVE: CASE EVENT DATE: 20150213
